FAERS Safety Report 14069906 (Version 3)
Quarter: 2017Q4

REPORT INFORMATION
  Report Type: Report from Study
  Country: CO (occurrence: CO)
  Receive Date: 20171010
  Receipt Date: 20171109
  Transmission Date: 20180321
  Serious: Yes (Hospitalization)
  Sender: FDA-Public Use
  Company Number: PHHY2017CO148624

PATIENT
  Sex: Female
  Weight: 75 kg

DRUGS (1)
  1. ENTRESTO [Suspect]
     Active Substance: SACUBITRIL\VALSARTAN
     Indication: CARDIAC FAILURE
     Dosage: 50 MG (24MG OF SACUBITRIL AND 26MG OF VALSARTAN), Q12H
     Route: 048
     Dates: start: 20170922

REACTIONS (5)
  - Skin discolouration [Unknown]
  - Cardiac disorder [Unknown]
  - Blood pressure increased [Unknown]
  - Dyspnoea [Unknown]
  - Venous occlusion [Recovering/Resolving]
